FAERS Safety Report 10678217 (Version 1)
Quarter: 2014Q4

REPORT INFORMATION
  Report Type: Spontaneous
  Country: IT (occurrence: IT)
  Receive Date: 20141229
  Receipt Date: 20141229
  Transmission Date: 20150529
  Serious: Yes (Hospitalization)
  Sender: FDA-Public Use
  Company Number: IT-TEVA-530300ISR

PATIENT
  Age: 55 Year
  Sex: Female

DRUGS (7)
  1. TALOFEN [Suspect]
     Active Substance: PROMAZINE HYDROCHLORIDE
     Indication: DRUG ABUSE
     Dosage: 1 DF TOTAL
     Route: 048
     Dates: start: 20141209, end: 20141209
  2. RELPAX [Suspect]
     Active Substance: ELETRIPTAN HYDROBROMIDE
     Indication: DRUG ABUSE
     Dosage: 1 DF TOTAL
     Route: 048
     Dates: start: 20141209, end: 20141209
  3. CONGESCOR - 1.25 MG COMPRESSE [Concomitant]
     Indication: PRODUCT USED FOR UNKNOWN INDICATION
     Dosage: 1 DF
     Route: 048
  4. QUETIAPINE [Suspect]
     Active Substance: QUETIAPINE
     Indication: DRUG ABUSE
     Dosage: 40 DF TOTAL
     Route: 048
     Dates: start: 20141209, end: 20141209
  5. DIAZEPAM. [Suspect]
     Active Substance: DIAZEPAM
     Indication: DRUG ABUSE
     Dosage: 1 G TOTAL
     Route: 048
     Dates: start: 20141209, end: 20141209
  6. SINEMET - 250 MG + 25 MG COMPRESSE [Concomitant]
     Indication: PRODUCT USED FOR UNKNOWN INDICATION
     Dosage: 1 DF
     Route: 048
  7. METFORMIN [Concomitant]
     Active Substance: METFORMIN HYDROCHLORIDE
     Indication: DIABETES MELLITUS
     Dosage: 1 DF
     Route: 048

REACTIONS (3)
  - Intentional self-injury [None]
  - Drug abuse [Recovered/Resolved]
  - Depressed mood [None]

NARRATIVE: CASE EVENT DATE: 20141209
